FAERS Safety Report 8713103 (Version 2)
Quarter: 2012Q4

REPORT INFORMATION
  Report Type: 
  Country: VE (occurrence: VE)
  Receive Date: 20120808
  Receipt Date: 20120906
  Transmission Date: 20130627
  Serious: Yes (Death, Other)
  Sender: FDA-Public Use
  Company Number: VE-PFIZER INC-2012191939

PATIENT
  Age: 80 Year
  Sex: Male

DRUGS (1)
  1. LIPITOR [Suspect]
     Indication: CARDIOVASCULAR DISORDER
     Dosage: 80 mg, UNK

REACTIONS (3)
  - Death [Fatal]
  - Rhabdomyolysis [Unknown]
  - Myalgia [Unknown]
